FAERS Safety Report 6932801-X (Version None)
Quarter: 2010Q3

REPORT INFORMATION
  Report Type: 
  Country: None (occurrence: None)
  Receive Date: 20100819
  Receipt Date: 20100809
  Transmission Date: 20110219
  Serious: Yes (Death, Other)
  Sender: FDA-Public Use
  Company Number: IT-GENENTECH-305322

PATIENT

DRUGS (1)
  1. RITUXIMAB [Suspect]
     Indication: DIFFUSE LARGE B-CELL LYMPHOMA
     Dosage: 375 MG/M2, UNK
     Route: 065

REACTIONS (8)
  - ANAEMIA [None]
  - GASTROINTESTINAL TOXICITY [None]
  - GRANULOCYTOPENIA [None]
  - HAEMATOTOXICITY [None]
  - HEPATITIS B [None]
  - HEPATOTOXICITY [None]
  - IATROGENIC INJURY [None]
  - THROMBOCYTOPENIA [None]
